FAERS Safety Report 10554067 (Version 1)
Quarter: 2014Q4

REPORT INFORMATION
  Report Type: Spontaneous
  Country: FR (occurrence: FR)
  Receive Date: 20141030
  Receipt Date: 20141030
  Transmission Date: 20150529
  Serious: Yes (Hospitalization)
  Sender: FDA-Public Use
  Company Number: FR-SA-2014SA146782

PATIENT
  Age: 66 Year
  Sex: Female
  Weight: 60.1 kg

DRUGS (11)
  1. STROMECTOL [Suspect]
     Active Substance: IVERMECTIN
     Indication: ACARODERMATITIS
     Dosage: TAKEN TO-SEPTEMBER 2014
     Route: 048
     Dates: start: 20140911
  2. FLECAINE [Concomitant]
     Active Substance: FLECAINIDE
     Indication: TACHYCARDIA
     Route: 048
     Dates: start: 20140307
  3. COZAAR [Concomitant]
     Active Substance: LOSARTAN POTASSIUM
     Indication: HYPERTENSION
     Route: 048
  4. NEORAL [Concomitant]
     Active Substance: CYCLOSPORINE
     Route: 048
     Dates: start: 20140819
  5. FEXOFENADINE [Suspect]
     Active Substance: FEXOFENADINE\FEXOFENADINE HYDROCHLORIDE
     Route: 048
     Dates: start: 20140819, end: 20140909
  6. ASCABIOL [Suspect]
     Active Substance: BENZYL BENZOATE
     Route: 003
     Dates: start: 20140911, end: 20140917
  7. IMUREL [Concomitant]
     Active Substance: AZATHIOPRINE SODIUM
     Route: 048
     Dates: start: 20140718
  8. CORTANCYL [Concomitant]
     Active Substance: PREDNISONE
     Route: 048
     Dates: start: 20140819
  9. PRIMALAN [Suspect]
     Active Substance: MEQUITAZINE
     Route: 048
     Dates: start: 20140826, end: 20140909
  10. TRANSIPEG [Concomitant]
     Active Substance: POLYETHYLENE GLYCOL 3350
     Route: 065
     Dates: end: 201409
  11. INEXIUM [Concomitant]
     Active Substance: ESOMEPRAZOLE
     Route: 048
     Dates: start: 20140819

REACTIONS (3)
  - Liver disorder [Recovering/Resolving]
  - Cholestasis [Recovering/Resolving]
  - Hepatocellular injury [Recovered/Resolved]

NARRATIVE: CASE EVENT DATE: 20140911
